FAERS Safety Report 6065310-3 (Version None)
Quarter: 2009Q1

REPORT INFORMATION
  Report Type: 
  Country: None (occurrence: None)
  Receive Date: 20090204
  Receipt Date: 20090127
  Transmission Date: 20090719
  Serious: Yes (Hospitalization)
  Sender: FDA-Public Use
  Company Number: DE-ABBOTT-09P-062-0500056-00

PATIENT
  Sex: Female

DRUGS (5)
  1. HUMIRA [Suspect]
     Indication: DRUG USE FOR UNKNOWN INDICATION
     Dates: start: 20050701, end: 20050701
  2. HUMIRA [Suspect]
     Dates: start: 20040101, end: 20041101
  3. METHOTREXATE [Suspect]
     Indication: DRUG USE FOR UNKNOWN INDICATION
  4. METHOTREXATE [Suspect]
  5. METHOTREXATE [Suspect]

REACTIONS (2)
  - NEURILEMMOMA MALIGNANT [None]
  - NEUROENDOCRINE CARCINOMA OF THE SKIN [None]
